FAERS Safety Report 6441554-3 (Version None)
Quarter: 2009Q4

REPORT INFORMATION
  Report Type: 
  Country: None (occurrence: None)
  Receive Date: 20091116
  Receipt Date: 20091105
  Transmission Date: 20100525
  Serious: Yes (Hospitalization)
  Sender: FDA-Public Use
  Company Number: FR-ASTRAZENECA-2009SE24619

PATIENT
  Age: 65 Year
  Sex: Male

DRUGS (24)
  1. NEXIUM [Suspect]
     Route: 048
  2. COVERSYL [Suspect]
     Route: 048
     Dates: end: 20090404
  3. COVERSYL [Suspect]
     Route: 048
     Dates: start: 20090405, end: 20090406
  4. COVERSYL [Suspect]
     Route: 048
     Dates: start: 20090407, end: 20090422
  5. COVERSYL [Suspect]
     Route: 048
     Dates: start: 20090430
  6. LASILIX [Suspect]
     Route: 048
     Dates: start: 20090408, end: 20090408
  7. LASILIX [Suspect]
     Route: 048
     Dates: start: 20090409, end: 20090411
  8. LASILIX [Suspect]
     Route: 048
     Dates: start: 20090412, end: 20090414
  9. LASILIX [Suspect]
     Route: 048
     Dates: start: 20090415, end: 20090415
  10. LASILIX [Suspect]
     Route: 048
     Dates: start: 20090416, end: 20090417
  11. LASILIX [Suspect]
     Route: 048
     Dates: start: 20090418, end: 20090421
  12. LASILIX [Suspect]
     Route: 048
     Dates: start: 20090422, end: 20090423
  13. LASILIX [Suspect]
     Route: 048
     Dates: start: 20090424, end: 20090425
  14. LASILIX [Suspect]
     Route: 048
     Dates: start: 20090426, end: 20090429
  15. TRILEPTAL [Suspect]
     Route: 048
     Dates: end: 20090422
  16. KARDEGIC [Concomitant]
     Route: 048
     Dates: end: 20090407
  17. TAHOR [Concomitant]
     Route: 048
  18. CARDENSIEL [Concomitant]
     Route: 048
     Dates: end: 20090406
  19. CARDENSIEL [Concomitant]
     Dosage: 5 MG IN THE MORNING AND 2.5 MG IN THE EVENING
     Route: 048
     Dates: start: 20090407
  20. ORBENIN CAP [Concomitant]
     Route: 048
     Dates: end: 20090407
  21. ORBENIN CAP [Concomitant]
     Route: 048
     Dates: end: 20090422
  22. ATARAX [Concomitant]
     Route: 048
  23. LOVENOX [Concomitant]
     Route: 058
     Dates: end: 20090407
  24. NOVONORM [Concomitant]
     Route: 048

REACTIONS (4)
  - BLOOD CREATININE INCREASED [None]
  - HYPERKALAEMIA [None]
  - HYPOCHLORAEMIA [None]
  - HYPONATRAEMIA [None]
